FAERS Safety Report 20770381 (Version 1)
Quarter: 2022Q2

REPORT INFORMATION
  Report Type: Spontaneous
  Country: AT (occurrence: AT)
  Receive Date: 20220429
  Receipt Date: 20220429
  Transmission Date: 20220721
  Serious: Yes (Other)
  Sender: FDA-Public Use
  Company Number: None

PATIENT
  Age: 82 Year
  Sex: Male

DRUGS (1)
  1. YERVOY [Suspect]
     Active Substance: IPILIMUMAB
     Indication: Product used for unknown indication
     Dates: start: 20220302, end: 20220302

REACTIONS (2)
  - Swelling [Recovered/Resolved with Sequelae]
  - Administration site extravasation [Recovered/Resolved with Sequelae]

NARRATIVE: CASE EVENT DATE: 20220302
